FAERS Safety Report 24820336 (Version 1)
Quarter: 2025Q1

REPORT INFORMATION
  Report Type: Report from Study
  Country: US (occurrence: US)
  Receive Date: 20250108
  Receipt Date: 20250108
  Transmission Date: 20250409
  Serious: Yes (Hospitalization, Other)
  Sender: NOVARTIS
  Company Number: US-002147023-NVSC2025US002289

PATIENT

DRUGS (1)
  1. KISQALI [Suspect]
     Active Substance: RIBOCICLIB
     Indication: Product used for unknown indication
     Dosage: 400 MG, QD
     Route: 048
     Dates: start: 202411

REACTIONS (7)
  - Nausea [Unknown]
  - Dry mouth [Unknown]
  - Pain [Unknown]
  - Oesophagitis [Unknown]
  - Somnolence [Unknown]
  - Arthralgia [Unknown]
  - Long QT syndrome [Unknown]
